FAERS Safety Report 6754101-3 (Version None)
Quarter: 2010Q2

REPORT INFORMATION
  Report Type: 
  Country: None (occurrence: None)
  Receive Date: 20100527
  Receipt Date: 20100518
  Transmission Date: 20101027
  Serious: Yes (Other)
  Sender: FDA-Public Use
  Company Number: 2010SP023901

PATIENT
  Age: 31 Year
  Sex: Female

DRUGS (6)
  1. SAPHRIS [Suspect]
     Indication: SCHIZOAFFECTIVE DISORDER BIPOLAR TYPE
     Dosage: 5 MG; BID; PO;  15 MG; QD; PO
     Route: 048
     Dates: end: 20100503
  2. SAPHRIS [Suspect]
     Indication: SCHIZOAFFECTIVE DISORDER BIPOLAR TYPE
     Dosage: 5 MG; BID; PO;  15 MG; QD; PO
     Route: 048
     Dates: start: 20100430
  3. INVEGA [Concomitant]
  4. KLONOPIN [Concomitant]
  5. AMBIEN [Concomitant]
  6. BUSPAR [Concomitant]

REACTIONS (2)
  - CONDITION AGGRAVATED [None]
  - PARANOIA [None]
